FAERS Safety Report 4853828-8 (Version None)
Quarter: 2005Q4

REPORT INFORMATION
  Report Type: 
  Country: None (occurrence: None)
  Receive Date: 20051213
  Receipt Date: 20051206
  Transmission Date: 20060501
  Serious: Yes (Hospitalization)
  Sender: FDA-Public Use
  Company Number: US-2005-014708

PATIENT
  Age: 74 Year
  Sex: Male

DRUGS (1)
  1. BETASERON [Suspect]
     Indication: RELAPSING-REMITTING MULTIPLE SCLEROSIS
     Dosage: 8 MIU, EVERY 2D; SUBCUTANEOUS
     Route: 058
     Dates: start: 19950627

REACTIONS (1)
  - CARDIAC FAILURE CONGESTIVE [None]
